FAERS Safety Report 7903804-3 (Version None)
Quarter: 2011Q4

REPORT INFORMATION
  Report Type: 
  Country: None (occurrence: None)
  Receive Date: 20111109
  Receipt Date: 20110126
  Transmission Date: 20120403
  Serious: Yes (Hospitalization, Other)
  Sender: FDA-Public Use
  Company Number: DE-BAYER-2010-004549

PATIENT
  Age: 55 Year
  Sex: Male

DRUGS (4)
  1. BETASERON [Suspect]
     Indication: MULTIPLE SCLEROSIS
     Dosage: UNK
     Dates: start: 20000101, end: 20101213
  2. BACLOFEN [Concomitant]
  3. L-DOPA [Concomitant]
  4. SPASMEX [Concomitant]

REACTIONS (2)
  - EXTREMITY NECROSIS [None]
  - RAYNAUD'S PHENOMENON [None]
